FAERS Safety Report 23918425 (Version 1)
Quarter: 2024Q2

REPORT INFORMATION
  Report Type: Spontaneous
  Country: IT (occurrence: IT)
  Receive Date: 20240530
  Receipt Date: 20240530
  Transmission Date: 20240715
  Serious: Yes (Hospitalization)
  Sender: FDA-Public Use
  Company Number: IT-MINISAL02-973245

PATIENT
  Age: 76 Year
  Sex: Male

DRUGS (2)
  1. DELORAZEPAM [Suspect]
     Active Substance: DELORAZEPAM
     Indication: Anxiety
     Dosage: 30 MG SINGLE ADMINISTRATION
     Route: 048
     Dates: start: 20240110, end: 20240110
  2. PAROXETINE [Suspect]
     Active Substance: PAROXETINE
     Indication: Anxiety
     Dosage: 20 MG DAY
     Route: 048

REACTIONS (2)
  - Loss of consciousness [Recovered/Resolved]
  - Drug abuse [Recovered/Resolved]

NARRATIVE: CASE EVENT DATE: 20240110
